FAERS Safety Report 4982008-0 (Version None)
Quarter: 2006Q2

REPORT INFORMATION
  Report Type: 
  Country: None (occurrence: None)
  Receive Date: 20060425
  Receipt Date: 20060419
  Transmission Date: 20061013
  Serious: Yes (Hospitalization)
  Sender: FDA-Public Use
  Company Number: 2006UW06965

PATIENT
  Age: 49 Year
  Sex: Female

DRUGS (3)
  1. SEROQUEL [Suspect]
     Route: 048
  2. SEROQUEL [Suspect]
     Dosage: RESTARTED AT A LOWER DOSE
     Route: 048
  3. ABILIFY [Concomitant]

REACTIONS (1)
  - HOSPITALISATION [None]
